FAERS Safety Report 4617716-4 (Version None)
Quarter: 2005Q1

REPORT INFORMATION
  Report Type: 
  Country: None (occurrence: None)
  Receive Date: 20050324
  Receipt Date: 20050314
  Transmission Date: 20050727
  Serious: Yes (Hospitalization)
  Sender: FDA-Public Use
  Company Number: FR-ROCHE-398416

PATIENT
  Age: 37 Year
  Sex: Female
  Weight: 56 kg

DRUGS (6)
  1. FUZEON [Suspect]
     Indication: HIV INFECTION
     Route: 058
     Dates: start: 20040409, end: 20041110
  2. BACTRIM [Concomitant]
     Indication: DRUG USE FOR UNKNOWN INDICATION
     Route: 048
  3. TIPRANAVIR [Concomitant]
     Route: 048
     Dates: start: 20040409
  4. VIREAD [Concomitant]
     Route: 048
     Dates: start: 20040409
  5. NORVIR [Concomitant]
     Route: 048
     Dates: start: 20040409
  6. VIDEX [Concomitant]
     Route: 048
     Dates: start: 20040409

REACTIONS (7)
  - BLOOD LACTATE DEHYDROGENASE INCREASED [None]
  - COOMBS DIRECT TEST POSITIVE [None]
  - HAEMOGLOBIN DECREASED [None]
  - HAEMOLYSIS [None]
  - HAPTOGLOBIN DECREASED [None]
  - HYPERSPLENISM [None]
  - LIVER DISORDER [None]
